FAERS Safety Report 14006077 (Version 2)
Quarter: 2017Q4

REPORT INFORMATION
  Report Type: Report from Study
  Country: JP (occurrence: JP)
  Receive Date: 20170924
  Receipt Date: 20171020
  Transmission Date: 20180321
  Serious: Yes (Death, Life-Threatening)
  Sender: FDA-Public Use
  Company Number: PHJP2017JP029137

PATIENT
  Age: 43 Year
  Sex: Male

DRUGS (6)
  1. CALONAL [Concomitant]
     Active Substance: ACETAMINOPHEN
     Indication: NON-SMALL CELL LUNG CANCER STAGE IV
     Dosage: 400 MG, UNK
     Route: 048
  2. ZYKADIA [Suspect]
     Active Substance: CERITINIB
     Indication: NON-SMALL CELL LUNG CANCER STAGE IV
     Dosage: 600 MG, QD
     Route: 048
     Dates: start: 20170406, end: 20170416
  3. OMEPROTON [Concomitant]
     Active Substance: OMEPRAZOLE MAGNESIUM
     Indication: NON-SMALL CELL LUNG CANCER STAGE IV
     Dosage: 20 MG, UNK
     Route: 048
  4. NOVAMIN (PROCHLORPERAZINE) [Concomitant]
     Active Substance: PROCHLORPERAZINE
     Indication: NON-SMALL CELL LUNG CANCER
     Dosage: 5 MG, UNK
     Route: 048
  5. NAIXAN [Concomitant]
     Active Substance: NAPROXEN SODIUM
     Indication: NON-SMALL CELL LUNG CANCER STAGE IV
     Dosage: 100 MG, UNK
     Route: 048
  6. LOPEMIN [Concomitant]
     Active Substance: LOPERAMIDE HYDROCHLORIDE
     Indication: NON-SMALL CELL LUNG CANCER STAGE IV
     Dosage: 3 MG, UNK
     Route: 048

REACTIONS (7)
  - Meningitis bacterial [Not Recovered/Not Resolved]
  - Malignant neoplasm progression [Fatal]
  - Altered state of consciousness [Not Recovered/Not Resolved]
  - Endocarditis [Not Recovered/Not Resolved]
  - Cardiac valve vegetation [Unknown]
  - Non-small cell lung cancer stage IV [Fatal]
  - Pyrexia [Not Recovered/Not Resolved]

NARRATIVE: CASE EVENT DATE: 201604
